FAERS Safety Report 23411884 (Version 1)
Quarter: 2024Q1

REPORT INFORMATION
  Report Type: Spontaneous
  Country: DE (occurrence: DE)
  Receive Date: 20240117
  Receipt Date: 20240117
  Transmission Date: 20240409
  Serious: Yes (Other)
  Sender: FDA-Public Use
  Company Number: DE-PFIZER INC-PV202400006963

PATIENT
  Sex: Female

DRUGS (1)
  1. IBRANCE [Interacting]
     Active Substance: PALBOCICLIB

REACTIONS (2)
  - Drug interaction [Unknown]
  - Hepatotoxicity [Unknown]
